FAERS Safety Report 10909966 (Version 1)
Quarter: 2015Q1

REPORT INFORMATION
  Report Type: Spontaneous
  Country: US (occurrence: US)
  Receive Date: 20150312
  Receipt Date: 20150312
  Transmission Date: 20150721
  Serious: No
  Sender: FDA-Public Use
  Company Number: US-SA-2014SA085705

PATIENT
  Age: 62 Year
  Sex: Male

DRUGS (5)
  1. NASACORT ALLERGY 24HR [Suspect]
     Active Substance: TRIAMCINOLONE ACETONIDE
     Indication: NASAL CONGESTION
     Dosage: DOSE- ONCE PER 24-HOUR PERIOD
     Route: 065
     Dates: start: 20140801, end: 20140803
  2. NASACORT ALLERGY 24HR [Suspect]
     Active Substance: TRIAMCINOLONE ACETONIDE
     Indication: MULTIPLE ALLERGIES
     Dosage: DOSE- ONCE PER 24-HOUR PERIOD
     Route: 065
     Dates: start: 20140801, end: 20140803
  3. NASACORT ALLERGY 24HR [Suspect]
     Active Substance: TRIAMCINOLONE ACETONIDE
     Indication: RHINORRHOEA
     Dosage: DOSE- ONCE PER 24-HOUR PERIOD
     Route: 065
     Dates: start: 20140801, end: 20140803
  4. NOSTRILLA [Concomitant]
     Active Substance: OXYMETAZOLINE HYDROCHLORIDE
     Indication: NASAL CONGESTION
     Route: 065
     Dates: start: 20140803
  5. MUCINEX [Concomitant]
     Active Substance: GUAIFENESIN
     Indication: NASAL CONGESTION
     Route: 065
     Dates: start: 20141001

REACTIONS (3)
  - Condition aggravated [Recovered/Resolved]
  - Rhinorrhoea [Recovered/Resolved]
  - Drug ineffective [Unknown]

NARRATIVE: CASE EVENT DATE: 20140802
